FAERS Safety Report 20797689 (Version 2)
Quarter: 2022Q2

REPORT INFORMATION
  Report Type: Spontaneous
  Country: CA (occurrence: CA)
  Receive Date: 20220506
  Receipt Date: 20220510
  Transmission Date: 20220720
  Serious: Yes (Other)
  Sender: FDA-Public Use
  Company Number: CA-TARO-2022TAR00626

PATIENT
  Age: 17 Year
  Sex: Male

DRUGS (2)
  1. WARFARIN [Suspect]
     Active Substance: WARFARIN
     Indication: Superior sagittal sinus thrombosis
     Dosage: UNK
     Route: 065
  2. WARFARIN [Suspect]
     Active Substance: WARFARIN
     Dosage: UNK, RETRANSITIONED TO WARFARIN
     Route: 065

REACTIONS (2)
  - Neurological symptom [Unknown]
  - Condition aggravated [Unknown]
